FAERS Safety Report 12225200 (Version 1)
Quarter: 2016Q1

REPORT INFORMATION
  Report Type: Spontaneous
  Country: JP (occurrence: JP)
  Receive Date: 20160331
  Receipt Date: 20160331
  Transmission Date: 20160526
  Serious: Yes (Other)
  Sender: FDA-Public Use
  Company Number: JP-ACTAVIS-2016-06871

PATIENT
  Age: 65 Year
  Sex: Male

DRUGS (6)
  1. IRINOTECAN (UNKNOWN) [Suspect]
     Active Substance: IRINOTECAN
     Indication: CHEMOTHERAPY
     Dosage: 20% DOSE REDUCTION
     Route: 065
  2. OXALIPLATIN (UNKNOWN) [Suspect]
     Active Substance: OXALIPLATIN
     Indication: CHEMOTHERAPY
     Dosage: 20% DOSE REDUCTION
     Route: 065
  3. OXALIPLATIN (UNKNOWN) [Suspect]
     Active Substance: OXALIPLATIN
     Dosage: UNK, CYCLICAL
     Route: 065
  4. IRINOTECAN (UNKNOWN) [Suspect]
     Active Substance: IRINOTECAN
     Dosage: UNK, CYCLICAL
     Route: 065
  5. FLUOROURACIL. [Suspect]
     Active Substance: FLUOROURACIL
     Indication: CHEMOTHERAPY
     Dosage: 20% DOSE REDUCTION
     Route: 065
  6. FLUOROURACIL. [Suspect]
     Active Substance: FLUOROURACIL
     Dosage: UNK, CYCLICAL
     Route: 065

REACTIONS (6)
  - Neutropenia [Unknown]
  - Diarrhoea [Unknown]
  - Interstitial lung disease [Unknown]
  - Pneumoretroperitoneum [Unknown]
  - Fatigue [Unknown]
  - Deep vein thrombosis [Unknown]
